FAERS Safety Report 7980559-8 (Version None)
Quarter: 2011Q4

REPORT INFORMATION
  Report Type: 
  Country: None (occurrence: None)
  Receive Date: 20111214
  Receipt Date: 20111205
  Transmission Date: 20120403
  Serious: Yes (Other)
  Sender: FDA-Public Use
  Company Number: US-ABBOTT-11P-163-0878852-00

PATIENT
  Sex: Female

DRUGS (3)
  1. HUMIRA [Suspect]
     Route: 058
     Dates: start: 20111107
  2. PLAQUENIL [Suspect]
     Indication: RHEUMATOID ARTHRITIS
     Dates: end: 20110501
  3. HUMIRA [Suspect]
     Indication: RHEUMATOID ARTHRITIS
     Route: 058
     Dates: start: 20080101, end: 20091201

REACTIONS (6)
  - DEAFNESS UNILATERAL [None]
  - RHEUMATOID ARTHRITIS [None]
  - HYPOACUSIS [None]
  - PIGMENTATION DISORDER [None]
  - EAR DISCOMFORT [None]
  - SKIN HYPERPIGMENTATION [None]
